FAERS Safety Report 23105858 (Version 2)
Quarter: 2023Q4

REPORT INFORMATION
  Report Type: Spontaneous
  Country: JP (occurrence: JP)
  Receive Date: 20231025
  Receipt Date: 20231101
  Transmission Date: 20240109
  Serious: Yes (Other)
  Sender: FDA-Public Use
  Company Number: JP-MOCHP-A20234163

PATIENT
  Age: 9 Decade
  Sex: Female

DRUGS (1)
  1. LEXAPRO [Suspect]
     Active Substance: ESCITALOPRAM OXALATE
     Indication: Product used for unknown indication
     Route: 048
     Dates: start: 2021

REACTIONS (5)
  - Breast cancer [Unknown]
  - Metastases to bone [Unknown]
  - Bladder disorder [Unknown]
  - Dysuria [Unknown]
  - Anorectal disorder [Unknown]
